FAERS Safety Report 15739555 (Version 1)
Quarter: 2018Q4

REPORT INFORMATION
  Report Type: Spontaneous
  Country: US (occurrence: US)
  Receive Date: 20181219
  Receipt Date: 20181219
  Transmission Date: 20190205
  Serious: No
  Sender: FDA-Public Use
  Company Number: US-ALLERGAN-1852299US

PATIENT
  Age: 75 Year
  Sex: Male
  Weight: 82.54 kg

DRUGS (3)
  1. BYSTOLIC [Suspect]
     Active Substance: NEBIVOLOL HYDROCHLORIDE
     Dosage: 2.5 MG, QHS
     Route: 048
  2. BYSTOLIC [Suspect]
     Active Substance: NEBIVOLOL HYDROCHLORIDE
     Indication: HYPERTENSION
     Dosage: 2.5 MG, QAM
     Route: 048
  3. BYSTOLIC [Suspect]
     Active Substance: NEBIVOLOL HYDROCHLORIDE
     Dosage: 2.5 MG, QAM
     Route: 048

REACTIONS (3)
  - Product dose omission [Unknown]
  - Dizziness [Not Recovered/Not Resolved]
  - Electronystagmogram abnormal [Unknown]

NARRATIVE: CASE EVENT DATE: 201810
